FAERS Safety Report 6123332-8 (Version None)
Quarter: 2009Q1

REPORT INFORMATION
  Report Type: 
  Country: None (occurrence: None)
  Receive Date: 20090318
  Receipt Date: 20090304
  Transmission Date: 20090719
  Serious: Yes (Other)
  Sender: FDA-Public Use
  Company Number: ZA-PFIZER INC-2009178611

PATIENT

DRUGS (2)
  1. PHENYTOIN SODIUM CAP [Suspect]
     Dosage: UNK
     Route: 048
     Dates: end: 20090201
  2. WARFARIN SODIUM [Concomitant]

REACTIONS (2)
  - ANTICONVULSANT DRUG LEVEL INCREASED [None]
  - CONVULSION [None]
